FAERS Safety Report 16105273 (Version 1)
Quarter: 2019Q1

REPORT INFORMATION
  Report Type: Spontaneous
  Country: US (occurrence: US)
  Receive Date: 20190322
  Receipt Date: 20190322
  Transmission Date: 20190418
  Serious: No
  Sender: FDA-Public Use
  Company Number: US-VERTEX PHARMACEUTICALS-2019-002315

PATIENT
  Sex: Male

DRUGS (3)
  1. KALYDECO [Suspect]
     Active Substance: IVACAFTOR
     Indication: BRONCHIECTASIS
     Dosage: UNK
     Route: 048
  2. RAPAMUNE [Interacting]
     Active Substance: SIROLIMUS
     Indication: LIVER TRANSPLANT
     Dosage: 1 MG, QD
     Route: 065
  3. RAPAMUNE [Interacting]
     Active Substance: SIROLIMUS
     Dosage: 0.5 MG, QD
     Route: 065

REACTIONS (3)
  - Immunosuppressant drug level increased [Unknown]
  - Drug interaction [Unknown]
  - Off label use [Unknown]
